FAERS Safety Report 24258161 (Version 2)
Quarter: 2024Q3

REPORT INFORMATION
  Report Type: Report from Study
  Country: DE (occurrence: None)
  Receive Date: 20240828
  Receipt Date: 20240909
  Transmission Date: 20241016
  Serious: Yes (Other)
  Sender: ADIENNE PHARMA & BIOTECH
  Company Number: DE-ADIENNEP-2024AD000691

PATIENT
  Age: 56 Year

DRUGS (5)
  1. THIOTEPA [Suspect]
     Active Substance: THIOTEPA
     Indication: Allogenic stem cell transplantation
  2. MELPHALAN [Suspect]
     Active Substance: MELPHALAN
     Indication: Allogenic stem cell transplantation
  3. FLUDARABINE [Suspect]
     Active Substance: FLUDARABINE PHOSPHATE
     Indication: Allogenic stem cell transplantation
  4. THYMOCYTE IMMUNE GLOBULIN NOS [Suspect]
     Active Substance: THYMOCYTE IMMUNE GLOBULIN NOS
     Indication: Allogenic stem cell transplantation
  5. MYCOPHENOLATE MOFETIL [Concomitant]
     Active Substance: MYCOPHENOLATE MOFETIL
     Indication: Prophylaxis against graft versus host disease

REACTIONS (7)
  - Graft versus host disease in skin [Unknown]
  - Human herpesvirus 6 infection reactivation [Unknown]
  - Adenovirus reactivation [Unknown]
  - Herpes simplex reactivation [Unknown]
  - Viraemia [Unknown]
  - Pneumonia adenoviral [Unknown]
  - Urinary tract infection viral [Unknown]
